FAERS Safety Report 22366621 (Version 1)
Quarter: 2023Q2

REPORT INFORMATION
  Report Type: Spontaneous
  Country: GB (occurrence: GB)
  Receive Date: 20230525
  Receipt Date: 20230525
  Transmission Date: 20230721
  Serious: Yes (Death, Other)
  Sender: FDA-Public Use
  Company Number: GB-AMGEN-GBRSP2023084087

PATIENT

DRUGS (2)
  1. FILGRASTIM [Suspect]
     Active Substance: FILGRASTIM
     Indication: Prophylaxis
     Dosage: UNK (300-480 MCG) AT LEAST FIVE CONSECUTIVE DAYS
     Route: 065
  2. PEGFILGRASTIM [Suspect]
     Active Substance: PEGFILGRASTIM
     Indication: Prophylaxis
     Dosage: 6 MILLIGRAM FOR ONE DAY
     Route: 065

REACTIONS (5)
  - Death [Fatal]
  - COVID-19 [Fatal]
  - Adverse event [Unknown]
  - Immune system disorder [Unknown]
  - SARS-CoV-2 test positive [Unknown]
